FAERS Safety Report 5135176-4 (Version None)
Quarter: 2006Q4

REPORT INFORMATION
  Report Type: 
  Country: None (occurrence: None)
  Receive Date: 20061026
  Receipt Date: 20060914
  Transmission Date: 20070319
  Serious: Yes (Hospitalization, Other)
  Sender: FDA-Public Use
  Company Number: PHBS2006JP14368

PATIENT
  Age: 70 Year
  Sex: Male
  Weight: 52 kg

DRUGS (12)
  1. VOLTAREN [Suspect]
     Indication: PAIN
     Dosage: 25 MG/DAY
     Route: 054
     Dates: start: 20060401
  2. VOLTAREN [Suspect]
     Dosage: 12.5 MG/DAY
     Route: 054
     Dates: start: 20060810, end: 20060828
  3. GASTER D [Suspect]
     Indication: PROPHYLAXIS AGAINST GASTROINTESTINAL ULCER
     Dosage: 20 MG/DAY
     Route: 048
     Dates: start: 20060810, end: 20060824
  4. MUCOSTA [Concomitant]
     Indication: PROPHYLAXIS AGAINST GASTROINTESTINAL ULCER
     Dosage: 300 MG/DAY
     Route: 048
     Dates: start: 20060810, end: 20060914
  5. LANIRAPID [Concomitant]
     Indication: CARDIAC FAILURE
     Dosage: 0.05 MG/DAY
     Route: 048
     Dates: start: 20060810
  6. LASIX [Concomitant]
     Indication: CARDIAC FAILURE
     Dosage: 30 MG/DAY
     Route: 048
     Dates: start: 20060810
  7. ALDACTONE [Concomitant]
     Indication: CARDIAC FAILURE
     Dosage: 25 MG/DAY
     Route: 048
     Dates: start: 20060810
  8. CIBENOL [Concomitant]
     Indication: ARRHYTHMIA
     Dosage: 300 MG/DAY
     Route: 048
     Dates: start: 20060810
  9. ALLELOCK [Concomitant]
     Indication: PAIN
     Dosage: 10 MG/DAY
     Route: 048
     Dates: start: 20060810
  10. FRANDOL [Concomitant]
     Indication: CARDIAC FAILURE
     Dosage: 40 MG/DAY
     Route: 061
     Dates: start: 20060810
  11. FERROMIA [Concomitant]
     Dosage: 100 MG/DAY
     Route: 048
     Dates: start: 20060825
  12. LEPETAN [Concomitant]
     Indication: PAIN
     Route: 054
     Dates: start: 20060829, end: 20060902

REACTIONS (12)
  - ANOREXIA [None]
  - AUTOIMMUNE THROMBOCYTOPENIA [None]
  - BLOOD CREATININE INCREASED [None]
  - BLOOD SODIUM DECREASED [None]
  - BLOOD UREA INCREASED [None]
  - GAMMA-GLUTAMYLTRANSFERASE INCREASED [None]
  - HAEMATOCRIT DECREASED [None]
  - HAEMOGLOBIN DECREASED [None]
  - LYMPHOCYTE COUNT DECREASED [None]
  - PLATELET COUNT DECREASED [None]
  - RED BLOOD CELL COUNT DECREASED [None]
  - WEIGHT DECREASED [None]
